FAERS Safety Report 17098181 (Version 1)
Quarter: 2019Q4

REPORT INFORMATION
  Report Type: Spontaneous
  Country: CN (occurrence: CN)
  Receive Date: 20191202
  Receipt Date: 20191202
  Transmission Date: 20200122
  Serious: Yes (Death, Hospitalization, Other)
  Sender: FDA-Public Use
  Company Number: CN-JUBILANT CADISTA PHARMACEUTICALS-2019JUB00442

PATIENT
  Age: 65 Year
  Sex: Male

DRUGS (7)
  1. DEXAMETHASONE. [Concomitant]
     Active Substance: DEXAMETHASONE
     Indication: PAIN
     Dosage: 5 MG, 1X/DAY (CONTINUOUS TREATMENT FOR 3 D)
     Route: 042
  2. VALACYCLOVIR HYDROCHLORIDE. [Suspect]
     Active Substance: VALACYCLOVIR HYDROCHLORIDE
     Dosage: 0.3 G, 2X/DAY AFTER 3 D
     Route: 048
  3. 2.5% CALCIUM GLUCOSE [Concomitant]
     Indication: CHRONIC KIDNEY DISEASE
     Dosage: 2000 ML ? 4 BAGS CONTINUOUS AMBULATORY PERITONEAL DIALYSIS WITH AN ULTRAFILTRATION OF 1200 ML/D
     Route: 065
  4. ACYCLOVIR. [Suspect]
     Active Substance: ACYCLOVIR
     Indication: HERPES ZOSTER
     Dosage: 0.3 MG, 2X/DAY
     Route: 048
  5. NIFEDIPINE. [Concomitant]
     Active Substance: NIFEDIPINE
     Indication: HYPERTENSION
     Dosage: 30 MG, 2X/DAY
     Route: 065
  6. VALSARTAN. [Concomitant]
     Active Substance: VALSARTAN
     Indication: HYPERTENSION
     Dosage: 80 MG, 2X/DAY
     Route: 065
  7. VALACYCLOVIR HYDROCHLORIDE. [Suspect]
     Active Substance: VALACYCLOVIR HYDROCHLORIDE
     Indication: HERPES ZOSTER
     Dosage: 0.5 MG, 1X/DAY
     Route: 042

REACTIONS (3)
  - Respiratory failure [Not Recovered/Not Resolved]
  - Neurotoxicity [Fatal]
  - Accidental overdose [Not Recovered/Not Resolved]

NARRATIVE: CASE EVENT DATE: 201807
